FAERS Safety Report 8484267-9 (Version None)
Quarter: 2012Q3

REPORT INFORMATION
  Report Type: 
  Country: None (occurrence: None)
  Receive Date: 20120703
  Receipt Date: 20120625
  Transmission Date: 20120928
  Serious: Yes (Hospitalization)
  Sender: FDA-Public Use
  Company Number: US-ASTRAZENECA-2011SE41525

PATIENT
  Age: 51 Year
  Sex: Female
  Weight: 95.3 kg

DRUGS (45)
  1. GABAPENTIN [Concomitant]
  2. BENICAR HCT [Concomitant]
     Dosage: 40/12.5 MILLIGRAMS DAILY
     Dates: start: 20100105
  3. ULTRAM [Concomitant]
     Route: 048
     Dates: start: 20100105
  4. TEMAZEPAM [Concomitant]
     Route: 048
     Dates: start: 20090331, end: 20090405
  5. CALCIUM [Concomitant]
     Indication: OSTEOPOROSIS
     Dates: start: 20050101
  6. SPIRONOLACT [Concomitant]
  7. GABAPENTIN [Concomitant]
  8. BENICAR HCT [Concomitant]
     Dosage: 40/12.5MG
  9. LORTAB/NORCO [Concomitant]
     Indication: PAIN
     Dosage: 7.5 MG FOUR TIMES A DAY
     Dates: start: 20081007
  10. KENALOG [Concomitant]
     Dosage: 40 MG NEBULIZED TWO TIMES DAILY ADD 40 MG TO AM AND PM NEB TREATMENT
     Route: 048
     Dates: start: 20090331, end: 20090414
  11. ASPIRIN [Concomitant]
     Dates: start: 20080409
  12. HYDROCHLOROTHIAZIDE [Concomitant]
     Dates: start: 20080409
  13. ATACAND [Concomitant]
     Dosage: 32/12.5
     Dates: start: 20080409
  14. ULTRAM [Concomitant]
     Dates: start: 20080409
  15. OMNICEF [Concomitant]
     Dates: start: 20080507
  16. KETORALAC [Concomitant]
     Dosage: 10 MILLIGRAMS BY MOUTH AS NEEDED
     Route: 048
     Dates: start: 20100105
  17. NEXIUM [Suspect]
     Route: 048
     Dates: start: 20090331, end: 20090414
  18. ISOSORBIDE [Concomitant]
     Dosage: ER 30 MG
     Dates: start: 20100105
  19. LORTAB/NORCO [Concomitant]
     Dosage: 10/325 MILLIGRAMS ONE BY MOUTH EVERY FOUR HOURS AS NEEDED
     Dates: start: 20100105
  20. ASPIRIN [Concomitant]
     Dosage: DAILY
     Dates: start: 20100105
  21. NEXIUM [Suspect]
     Indication: GASTROOESOPHAGEAL REFLUX DISEASE
     Route: 048
     Dates: start: 20050712
  22. ATACAND HCT [Concomitant]
     Dosage: 32/12.5MG DAILY
     Route: 048
  23. LIDOCAINE [Concomitant]
     Indication: TRIGGER FINGER
     Dosage: 0.5CC
     Dates: start: 20081007
  24. ATACAND [Concomitant]
     Route: 048
     Dates: start: 20090331, end: 20090414
  25. ULTRAM [Concomitant]
     Route: 048
     Dates: start: 20090331, end: 20090414
  26. NEXIUM [Suspect]
     Route: 048
     Dates: start: 20100105
  27. ISOSORBIDE [Concomitant]
     Dates: start: 20080409
  28. HYDROCHLOROTHIAZIDE [Concomitant]
     Dosage: TO BE TAKEN 1/2
     Route: 048
     Dates: start: 20090331, end: 20090414
  29. NEXIUM [Suspect]
     Route: 048
     Dates: start: 20050101, end: 20120101
  30. NEXIUM [Suspect]
     Route: 048
     Dates: start: 20060101
  31. NEXIUM [Suspect]
     Route: 048
     Dates: start: 20080409
  32. ISOSORBIDE [Concomitant]
     Route: 048
     Dates: start: 20090331, end: 20090414
  33. PLAVIX [Concomitant]
  34. SINGULAIR [Concomitant]
  35. PROVERA [Concomitant]
     Indication: HAEMOSTASIS
  36. ASPIRIN [Concomitant]
     Dates: start: 20070614
  37. ISOSORBIDE [Concomitant]
  38. KENALOG [Concomitant]
     Indication: TRIGGER FINGER
     Dosage: 0.5 CC
     Dates: start: 20081007
  39. HYDROCHLOROTHIAZIDE [Concomitant]
     Dates: start: 20070614
  40. LIPITOR [Concomitant]
     Dates: start: 20080609
  41. NEXIUM [Suspect]
     Route: 048
     Dates: start: 20080101
  42. PLAVIX [Concomitant]
     Dates: start: 20070614
  43. ATACAND HCT [Concomitant]
     Dosage: 32/12.5 MG
     Dates: start: 20080409
  44. FERROUS SULFATE TAB [Concomitant]
     Indication: ANAEMIA
  45. CRESTOR [Concomitant]
     Dates: start: 20070614

REACTIONS (9)
  - OSTEOPOROSIS [None]
  - LIMB CRUSHING INJURY [None]
  - HUMERUS FRACTURE [None]
  - SCAR [None]
  - LOWER LIMB FRACTURE [None]
  - ANKLE FRACTURE [None]
  - UPPER LIMB FRACTURE [None]
  - EMOTIONAL DISTRESS [None]
  - RADIUS FRACTURE [None]
